FAERS Safety Report 24332949 (Version 1)
Quarter: 2024Q3

REPORT INFORMATION
  Report Type: Spontaneous
  Country: US (occurrence: US)
  Receive Date: 20240918
  Receipt Date: 20240918
  Transmission Date: 20241016
  Serious: Yes (Other)
  Sender: APOTEX
  Company Number: US-APOTEX-2024AP010995

PATIENT
  Age: 51 Year
  Sex: Female

DRUGS (4)
  1. CITALOPRAM [Suspect]
     Active Substance: CITALOPRAM\CITALOPRAM HYDROBROMIDE
     Indication: Antidepressant therapy
     Dosage: 20 MILLIGRAM, QD
     Route: 065
  2. CITALOPRAM [Suspect]
     Active Substance: CITALOPRAM\CITALOPRAM HYDROBROMIDE
     Indication: Mood swings
  3. AMITRIPTYLINE [Suspect]
     Active Substance: AMITRIPTYLINE
     Indication: Antidepressant therapy
     Dosage: 100 MILLIGRAM, QD
     Route: 065
  4. AMITRIPTYLINE [Suspect]
     Active Substance: AMITRIPTYLINE
     Indication: Mood swings

REACTIONS (1)
  - Serotonin syndrome [Recovering/Resolving]
